FAERS Safety Report 6184043-6 (Version None)
Quarter: 2009Q2

REPORT INFORMATION
  Report Type: 
  Country: None (occurrence: None)
  Receive Date: 20090508
  Receipt Date: 20090504
  Transmission Date: 20091009
  Serious: Yes (Other)
  Sender: FDA-Public Use
  Company Number: US-ASTRAZENECA-2008UW24978

PATIENT
  Sex: Female

DRUGS (2)
  1. ARIMIDEX [Suspect]
     Indication: BREAST CANCER
     Route: 048
     Dates: start: 20070501, end: 20080301
  2. ARIMIDEX [Suspect]
     Route: 048
     Dates: start: 20080101, end: 20090101

REACTIONS (7)
  - ABDOMINAL DISTENSION [None]
  - DIZZINESS [None]
  - HAEMORRHAGE [None]
  - LABORATORY TEST ABNORMAL [None]
  - MALIGNANT NEOPLASM OF ORBIT [None]
  - OCULAR NEOPLASM [None]
  - VARICOSE VEIN [None]
